FAERS Safety Report 23972243 (Version 2)
Quarter: 2024Q2

REPORT INFORMATION
  Report Type: Spontaneous
  Country: US (occurrence: US)
  Receive Date: 20240613
  Receipt Date: 20240628
  Transmission Date: 20240716
  Serious: Yes (Hospitalization, Other)
  Sender: FDA-Public Use
  Company Number: US-PFIZER INC-PV202400076738

PATIENT
  Age: 77 Year
  Sex: Female

DRUGS (1)
  1. IBRANCE [Suspect]
     Active Substance: PALBOCICLIB
     Indication: Chemotherapy
     Dosage: UNK

REACTIONS (6)
  - Enterovesical fistula [Unknown]
  - Hypotension [Unknown]
  - Abdominal pain [Unknown]
  - Fatigue [Unknown]
  - Abdominal discomfort [Unknown]
  - Decreased appetite [Unknown]
